FAERS Safety Report 8761613 (Version 2)
Quarter: 2012Q4

REPORT INFORMATION
  Report Type: Spontaneous
  Country: US (occurrence: None)
  Receive Date: 20120821
  Receipt Date: 20120911
  Transmission Date: 20130627
  Serious: Yes (Hospitalization)
  Sender: FDA-Public Use
  Company Number: 2012HGS-003862

PATIENT
  Age: 50 Year
  Sex: Female
  Weight: 93.9 kg

DRUGS (4)
  1. BENLYSTA [Suspect]
     Indication: SLE
     Dosage: 1 in 28 D
     Route: 041
     Dates: start: 20120309
  2. BENLYSTA [Suspect]
     Indication: SLE
     Route: 041
     Dates: start: 20120703
  3. PLAQUENIL [Concomitant]
  4. METHOTREXATE (METHOTREXATE) (METHOTREXATE) [Concomitant]

REACTIONS (21)
  - Myositis [None]
  - Systemic lupus erythematosus [None]
  - Myalgia [None]
  - Muscular weakness [None]
  - Pneumocystis jiroveci pneumonia [None]
  - Sepsis [None]
  - Urinary tract infection [None]
  - Asthenia [None]
  - Dizziness [None]
  - Nausea [None]
  - Fatigue [None]
  - Insomnia [None]
  - Weight decreased [None]
  - Wheelchair user [None]
  - Dysstasia [None]
  - Disorientation [None]
  - Unresponsive to stimuli [None]
  - Convulsion [None]
  - Cushing^s syndrome [None]
  - Type 2 diabetes mellitus [None]
  - Myopathy [None]
